FAERS Safety Report 6531911-9 (Version None)
Quarter: 2010Q1

REPORT INFORMATION
  Report Type: 
  Country: None (occurrence: None)
  Receive Date: 20100108
  Receipt Date: 20100104
  Transmission Date: 20100710
  Serious: Yes (Death)
  Sender: FDA-Public Use
  Company Number: US-JNJFOC-20100101867

PATIENT
  Sex: Male

DRUGS (1)
  1. POLLAKISU [Suspect]
     Indication: POLLAKIURIA
     Route: 048

REACTIONS (1)
  - MESENTERIC OCCLUSION [None]
